FAERS Safety Report 7337831-4 (Version None)
Quarter: 2011Q1

REPORT INFORMATION
  Report Type: 
  Country: None (occurrence: None)
  Receive Date: 20110308
  Receipt Date: 20110301
  Transmission Date: 20110831
  Serious: Yes (Hospitalization, Other)
  Sender: FDA-Public Use
  Company Number: JP-ROCHE-753772

PATIENT
  Age: 65 Year
  Sex: Male
  Weight: 64 kg

DRUGS (6)
  1. GASTER [Concomitant]
  2. 5-FU [Suspect]
     Dosage: ROUTE: INTRAVENOUS DRIP, DOSAGE IS UNCERTAIN.
     Route: 041
  3. AVASTIN [Suspect]
     Indication: COLON CANCER METASTATIC
     Dosage: DOSAGE IS UNCERTAIN
     Route: 041
     Dates: start: 20101019, end: 20101129
  4. 5-FU [Suspect]
     Indication: COLON CANCER METASTATIC
     Dosage: ROUTE: INTRAVENOUS BOLUS, DOSAGE IS UNCERTAIN.
     Route: 041
  5. ELPLAT [Suspect]
     Indication: COLON CANCER METASTATIC
     Dosage: DOSAGE IS UNCERTAIN.
     Route: 041
  6. LEVOFOLINATE [Suspect]
     Indication: COLON CANCER METASTATIC
     Dosage: DOSAGE IS UNCERTAIN.
     Route: 041

REACTIONS (4)
  - ILEAL STENOSIS [None]
  - ABSCESS INTESTINAL [None]
  - SMALL INTESTINAL PERFORATION [None]
  - ILEAL PERFORATION [None]
